FAERS Safety Report 11368713 (Version 3)
Quarter: 2015Q4

REPORT INFORMATION
  Report Type: Report from Study
  Country: DE (occurrence: DE)
  Receive Date: 20150812
  Receipt Date: 20151009
  Transmission Date: 20160304
  Serious: Yes (Hospitalization)
  Sender: FDA-Public Use
  Company Number: DE-ABBVIE-15K-062-1441688-00

PATIENT
  Age: 26 Year
  Sex: Male
  Weight: 63 kg

DRUGS (3)
  1. 6-MP [Suspect]
     Active Substance: MERCAPTOPURINE
     Indication: PRODUCT USED FOR UNKNOWN INDICATION
     Route: 065
     Dates: start: 20140728
  2. HUMIRA [Suspect]
     Active Substance: ADALIMUMAB
     Indication: CROHN^S DISEASE
     Route: 058
     Dates: start: 20150203
  3. AZATHIOPRINE. [Suspect]
     Active Substance: AZATHIOPRINE
     Indication: PRODUCT USED FOR UNKNOWN INDICATION
     Route: 065
     Dates: start: 20140728

REACTIONS (6)
  - Perineal fistula [Recovered/Resolved]
  - Proctalgia [Recovering/Resolving]
  - Hypochromasia [Unknown]
  - Gastrointestinal inflammation [Unknown]
  - Microcytosis [Unknown]
  - Anal abscess [Recovered/Resolved]

NARRATIVE: CASE EVENT DATE: 20150726
